FAERS Safety Report 12967841 (Version 1)
Quarter: 2016Q4

REPORT INFORMATION
  Report Type: Spontaneous
  Country: US (occurrence: US)
  Receive Date: 20161122
  Receipt Date: 20161122
  Transmission Date: 20170207
  Serious: Yes (Disabling)
  Sender: FDA-Public Use
  Company Number: None

PATIENT
  Age: 71 Year
  Sex: Male
  Weight: 90 kg

DRUGS (8)
  1. PROLIA [Concomitant]
     Active Substance: DENOSUMAB
  2. ROPINIROLE. [Concomitant]
     Active Substance: ROPINIROLE
  3. HUMIRA [Suspect]
     Active Substance: ADALIMUMAB
     Indication: COLITIS ULCERATIVE
     Route: 058
  4. CENTRUM MEN^S [Concomitant]
  5. AZATHIOPRINE. [Concomitant]
     Active Substance: AZATHIOPRINE
  6. APRISO [Concomitant]
     Active Substance: MESALAMINE
  7. ASPIRIN. [Concomitant]
     Active Substance: ASPIRIN
  8. CALCIUM [Concomitant]
     Active Substance: CALCIUM

REACTIONS (1)
  - Psoriasis [None]

NARRATIVE: CASE EVENT DATE: 20161108
